FAERS Safety Report 20629876 (Version 1)
Quarter: 2022Q1

REPORT INFORMATION
  Report Type: Spontaneous
  Country: NL (occurrence: NL)
  Receive Date: 20220324
  Receipt Date: 20220324
  Transmission Date: 20220423
  Serious: Yes (Other)
  Sender: FDA-Public Use
  Company Number: NL-LRB-00749862

PATIENT
  Age: 52 Year
  Sex: Female
  Weight: 111 kg

DRUGS (5)
  1. ATORVASTATIN [Suspect]
     Active Substance: ATORVASTATIN
     Indication: Transient ischaemic attack
     Dosage: 1 PER DAY, ATORVASTATINE TABLET 40MG
     Route: 065
     Dates: start: 20210816
  2. SPIKEVAX [Suspect]
     Active Substance: ELASOMERAN
     Indication: COVID-19 immunisation
     Dosage: 1 DOSAGE FORM, UNK
     Route: 065
     Dates: start: 20220103
  3. SPIKEVAX [Suspect]
     Active Substance: ELASOMERAN
     Indication: COVID-19 immunisation
  4. CLOPIDOGREL [Suspect]
     Active Substance: CLOPIDOGREL BISULFATE
     Indication: Transient ischaemic attack
     Dosage: 1 PER DAY
     Route: 065
     Dates: start: 20210816
  5. HYDROCHLOROTHIAZIDE [Suspect]
     Active Substance: HYDROCHLOROTHIAZIDE
     Indication: Transient ischaemic attack
     Dosage: 1 PER DAY
     Route: 065
     Dates: start: 20210816

REACTIONS (11)
  - Syncope [Recovered/Resolved]
  - Injection site inflammation [Recovering/Resolving]
  - Pyrexia [Recovering/Resolving]
  - Headache [Recovering/Resolving]
  - Myalgia [Recovering/Resolving]
  - Nausea [Recovered/Resolved]
  - Injection site pain [Recovering/Resolving]
  - Malaise [Recovering/Resolving]
  - Injection site warmth [Recovering/Resolving]
  - Chills [Recovered/Resolved]
  - Fatigue [Recovering/Resolving]

NARRATIVE: CASE EVENT DATE: 20220103
